FAERS Safety Report 8620646-4 (Version None)
Quarter: 2012Q3

REPORT INFORMATION
  Report Type: 
  Country: None (occurrence: None)
  Receive Date: 20120824
  Receipt Date: 20120821
  Transmission Date: 20120928
  Serious: Yes (Death)
  Sender: FDA-Public Use
  Company Number: BR-ELI_LILLY_AND_COMPANY-BR201206004252

PATIENT
  Sex: Male

DRUGS (4)
  1. HUMALOG [Suspect]
     Indication: TYPE 2 DIABETES MELLITUS
     Dosage: UNK, UNKNOWN
     Route: 065
  2. DIURETICS [Concomitant]
     Indication: RENAL FAILURE
     Dosage: UNK, UNKNOWN
     Route: 065
  3. HUMULIN N [Concomitant]
     Dosage: 18 IU, UNKNOWN
     Route: 065
  4. HUMULIN N [Concomitant]
     Indication: TYPE 2 DIABETES MELLITUS
     Dosage: 36 IU, UNKNOWN
     Route: 065

REACTIONS (1)
  - RENAL FAILURE [None]
